FAERS Safety Report 25791670 (Version 1)
Quarter: 2025Q3

REPORT INFORMATION
  Report Type: Spontaneous
  Country: US (occurrence: US)
  Receive Date: 20250911
  Receipt Date: 20250911
  Transmission Date: 20251021
  Serious: No
  Sender: ITALFARMACO SPA
  Company Number: US-ITALFARMACO SPA-2184312

PATIENT
  Age: 15 Year
  Sex: Male
  Weight: 56.236 kg

DRUGS (1)
  1. DUVYZAT [Suspect]
     Active Substance: GIVINOSTAT
     Indication: Duchenne muscular dystrophy

REACTIONS (5)
  - Femur fracture [Recovering/Resolving]
  - Abdominal discomfort [Unknown]
  - Product taste abnormal [Unknown]
  - Gait disturbance [Recovering/Resolving]
  - Therapeutic response delayed [Recovering/Resolving]

NARRATIVE: CASE EVENT DATE: 20250411
